FAERS Safety Report 14013939 (Version 2)
Quarter: 2017Q3

REPORT INFORMATION
  Report Type: Spontaneous
  Country: ZA (occurrence: ZA)
  Receive Date: 20170926
  Receipt Date: 20170928
  Transmission Date: 20171128
  Serious: Yes (Hospitalization, Other)
  Sender: FDA-Public Use
  Company Number: ZA-MYLANLABS-2017M1058426

PATIENT
  Age: 67 Year
  Sex: Female

DRUGS (2)
  1. SERDEP (FLUOXETINE HYDROCHLORIDE) [Suspect]
     Active Substance: FLUOXETINE HYDROCHLORIDE
     Indication: DEPRESSION
     Dosage: 50 MG, UNK
     Route: 048
  2. MYLAN PANTOPRAZOLE 40 MG [Suspect]
     Active Substance: PANTOPRAZOLE SODIUM
     Indication: ULCER
     Dosage: 40 MG, UNK
     Route: 048

REACTIONS (1)
  - Hospitalisation [Unknown]
